FAERS Safety Report 7084238-3 (Version None)
Quarter: 2010Q4

REPORT INFORMATION
  Report Type: 
  Country: None (occurrence: None)
  Receive Date: 20101104
  Receipt Date: 20101025
  Transmission Date: 20110411
  Serious: Yes (Other)
  Sender: FDA-Public Use
  Company Number: US-PFIZER INC-2010135893

PATIENT
  Sex: Female

DRUGS (1)
  1. REVATIO [Suspect]
     Dosage: 120 MG (6 TABLETS OF 20 MG), 1X/DAY

REACTIONS (2)
  - INCORRECT DOSE ADMINISTERED [None]
  - RESPIRATORY FAILURE [None]
